FAERS Safety Report 19238047 (Version 3)
Quarter: 2021Q2

REPORT INFORMATION
  Report Type: Spontaneous
  Country: US (occurrence: US)
  Receive Date: 20210510
  Receipt Date: 20210609
  Transmission Date: 20210717
  Serious: No
  Sender: FDA-Public Use
  Company Number: US-LUPIN PHARMACEUTICALS INC.-2021-06034

PATIENT
  Sex: Male

DRUGS (2)
  1. NIACIN EXTENDED RELEASE TABLET USP 1000 MG [Suspect]
     Active Substance: NIACIN
     Dosage: 1000 MILLIGRAM, BID (2 TAB BEFORE BED)
     Route: 065
  2. NIACIN EXTENDED RELEASE TABLET USP 1000 MG [Suspect]
     Active Substance: NIACIN
     Indication: BLOOD CHOLESTEROL ABNORMAL
     Dosage: 1000 MILLIGRAM (10 OR 15 YEARS)
     Route: 065

REACTIONS (3)
  - Poor quality product administered [Unknown]
  - Flushing [Unknown]
  - Product quality issue [Unknown]
